FAERS Safety Report 20161814 (Version 1)
Quarter: 2021Q4

REPORT INFORMATION
  Report Type: Spontaneous
  Country: US (occurrence: US)
  Receive Date: 20211208
  Receipt Date: 20211208
  Transmission Date: 20220303
  Serious: Yes (Hospitalization, Disabling, Other)
  Sender: FDA-Public Use
  Company Number: US-PURDUE-USA-2021-0289815

PATIENT

DRUGS (1)
  1. OXYCONTIN [Suspect]
     Active Substance: OXYCODONE HYDROCHLORIDE
     Indication: Product used for unknown indication
     Dosage: UNKNOWN
     Route: 048

REACTIONS (9)
  - Renal failure [Unknown]
  - Drug dependence [Unknown]
  - Injury [Unknown]
  - Mental disorder [Unknown]
  - Thinking abnormal [Unknown]
  - Anxiety [Unknown]
  - Pain [Unknown]
  - Emotional distress [Unknown]
  - Unevaluable event [Unknown]

NARRATIVE: CASE EVENT DATE: 20060101
